FAERS Safety Report 7753390-6 (Version None)
Quarter: 2011Q3

REPORT INFORMATION
  Report Type: 
  Country: None (occurrence: None)
  Receive Date: 20110915
  Receipt Date: 20110912
  Transmission Date: 20111222
  Serious: Yes (Death, Other)
  Sender: FDA-Public Use
  Company Number: PHHY2011BR80994

PATIENT
  Sex: Male
  Weight: 2.86 kg

DRUGS (4)
  1. CIPROFLOXACIN [Suspect]
  2. VANCOMYCIN [Suspect]
     Indication: ANTIBIOTIC THERAPY
  3. PENICILLIN G SODIUM [Suspect]
     Route: 063
  4. METRONIDAZOLE [Suspect]

REACTIONS (15)
  - TOXIC EPIDERMAL NECROLYSIS [None]
  - SEPSIS [None]
  - PYREXIA [None]
  - VASCULITIS [None]
  - SKIN NECROSIS [None]
  - MESENTERIC ARTERY THROMBOSIS [None]
  - RASH ERYTHEMATOUS [None]
  - ENTEROCOLITIS [None]
  - LEUKOPENIA [None]
  - ABDOMINAL DISTENSION [None]
  - DERMATITIS BULLOUS [None]
  - EPIDERMAL NECROSIS [None]
  - THROMBOCYTOPENIA [None]
  - ULCERATIVE KERATITIS [None]
  - SEPTIC SHOCK [None]
